FAERS Safety Report 5580851-0 (Version None)
Quarter: 2008Q1

REPORT INFORMATION
  Report Type: 
  Country: None (occurrence: None)
  Receive Date: 20080103
  Receipt Date: 20080102
  Transmission Date: 20080703
  Serious: No
  Sender: FDA-Public Use
  Company Number: US-BOEHRINGER INGELHEIM PHARMACEUTICALS, INC.-2007-BP-00381BP

PATIENT
  Age: 67 Year
  Sex: Female

DRUGS (3)
  1. ATROVENT HFA [Suspect]
     Indication: CHRONIC OBSTRUCTIVE PULMONARY DISEASE
     Route: 055
     Dates: start: 20061001
  2. ADVAIR DISKUS 100/50 [Concomitant]
  3. COMBIVENT [Concomitant]

REACTIONS (1)
  - DRUG EFFECT DECREASED [None]
